FAERS Safety Report 6005706-9 (Version None)
Quarter: 2008Q4

REPORT INFORMATION
  Report Type: 
  Country: None (occurrence: None)
  Receive Date: 20081215
  Receipt Date: 20081204
  Transmission Date: 20090506
  Serious: Yes (Other)
  Sender: FDA-Public Use
  Company Number: 100#03#2008-06187

PATIENT
  Age: 14 Year
  Sex: Female

DRUGS (4)
  1. ONDANSETRON HCL [Suspect]
     Indication: NAUSEA
     Dosage: 3 MG INTRAVENOUS
     Route: 042
     Dates: start: 20080616, end: 20080616
  2. DICLOFENAC (DICLOFENAC) [Concomitant]
  3. MORPHINE [Concomitant]
  4. ACETAMINOPHEN [Concomitant]

REACTIONS (2)
  - HYPOTENSION [None]
  - SYNCOPE [None]
